FAERS Safety Report 18511908 (Version 3)
Quarter: 2020Q4

REPORT INFORMATION
  Report Type: Report from Study
  Country: DE (occurrence: DE)
  Receive Date: 20201117
  Receipt Date: 20201215
  Transmission Date: 20210114
  Serious: Yes (Hospitalization, Other)
  Sender: FDA-Public Use
  Company Number: DE-TAKEDA-2020TUS049020

PATIENT
  Sex: Female

DRUGS (2)
  1. VON WILLEBRAND FACTOR [Suspect]
     Active Substance: VON WILLEBRAND FACTOR HUMAN
     Indication: FACTOR VIII DEFICIENCY
     Dosage: 2600 INTERNATIONAL UNIT, 1/WEEK (1X 1300 M6V002AC AND 2X 650 IU 6U002AG)
     Route: 042
     Dates: start: 20201102, end: 20201102
  2. VON WILLEBRAND FACTOR [Suspect]
     Active Substance: VON WILLEBRAND FACTOR HUMAN
     Dosage: 2600 INTERNATIONAL UNIT, 1/WEEK (1X 1300 M6V002AC AND 2X 650 IU 6U002AG)
     Route: 042
     Dates: start: 20201102, end: 20201102

REACTIONS (2)
  - Haemorrhage [Recovering/Resolving]
  - Off label use [Unknown]

NARRATIVE: CASE EVENT DATE: 20201104
